FAERS Safety Report 5825603-9 (Version None)
Quarter: 2008Q3

REPORT INFORMATION
  Report Type: 
  Country: None (occurrence: None)
  Receive Date: 20080729
  Receipt Date: 20080724
  Transmission Date: 20090109
  Serious: Yes (Hospitalization)
  Sender: FDA-Public Use
  Company Number: A0739234A

PATIENT
  Age: 33 Year
  Sex: Male

DRUGS (2)
  1. LAMICTAL [Suspect]
     Indication: BIPOLAR DISORDER
     Dosage: 200MG PER DAY
     Route: 048
     Dates: start: 20070815, end: 20080716
  2. CELEXA [Concomitant]

REACTIONS (4)
  - BONE MARROW FAILURE [None]
  - IDIOPATHIC THROMBOCYTOPENIC PURPURA [None]
  - RASH [None]
  - THROMBOCYTOPENIA [None]
